FAERS Safety Report 18772071 (Version 1)
Quarter: 2021Q1

REPORT INFORMATION
  Report Type: Other
  Country: US (occurrence: US)
  Receive Date: 20210122
  Receipt Date: 20210122
  Transmission Date: 20210419
  Serious: Yes (Other)
  Sender: FDA-Public Use
  Company Number: US-ROCHE-2753065

PATIENT
  Age: 59 Year
  Sex: Female

DRUGS (9)
  1. TOCILIZUMAB. [Suspect]
     Active Substance: TOCILIZUMAB
     Indication: RHEUMATOID ARTHRITIS
     Route: 042
  2. ASCORBIC ACID. [Concomitant]
     Active Substance: ASCORBIC ACID
  3. OPIPRAMOL [Concomitant]
     Active Substance: OPIPRAMOL
  4. OMEPRAZOLE. [Concomitant]
     Active Substance: OMEPRAZOLE
  5. PREDNISOLONE. [Concomitant]
     Active Substance: PREDNISOLONE
  6. ACEMETACIN [Concomitant]
     Active Substance: ACEMETACIN
  7. LEVOTHYROXINE. [Concomitant]
     Active Substance: LEVOTHYROXINE
  8. METFORMIN [Concomitant]
     Active Substance: METFORMIN HYDROCHLORIDE
  9. METOPROLOL. [Concomitant]
     Active Substance: METOPROLOL

REACTIONS (1)
  - Liver injury [Unknown]
